FAERS Safety Report 9863862 (Version 2)
Quarter: 2014Q1

REPORT INFORMATION
  Report Type: Spontaneous
  Country: JP (occurrence: JP)
  Receive Date: 20140203
  Receipt Date: 20140225
  Transmission Date: 20141002
  Serious: Yes (Hospitalization)
  Sender: FDA-Public Use
  Company Number: JP-GLAXOSMITHKLINE-B0949240A

PATIENT
  Age: 42 Year
  Sex: Female

DRUGS (5)
  1. LAMICTAL [Suspect]
     Indication: BIPOLAR DISORDER
     Dosage: 25MG PER DAY
     Route: 048
     Dates: start: 20130108, end: 20130122
  2. PAROXETINE HYDROCHLORIDE HYDRATE [Concomitant]
     Indication: BIPOLAR DISORDER
     Route: 048
     Dates: end: 20130202
  3. QUETIAPINE FUMARATE [Concomitant]
     Indication: BIPOLAR DISORDER
     Route: 048
     Dates: end: 20130202
  4. ETIZOLAM [Concomitant]
     Indication: BIPOLAR DISORDER
     Route: 048
     Dates: end: 20130202
  5. ZOPICLONE [Concomitant]
     Indication: BIPOLAR DISORDER
     Route: 048
     Dates: end: 20130202

REACTIONS (9)
  - Drug eruption [Recovered/Resolved]
  - Jaundice [Recovering/Resolving]
  - Rash generalised [Recovering/Resolving]
  - Hepatic function abnormal [Recovering/Resolving]
  - Pyrexia [Recovering/Resolving]
  - Arthralgia [Recovering/Resolving]
  - Generalised erythema [Recovering/Resolving]
  - Papule [Recovering/Resolving]
  - Rash [Recovering/Resolving]
